FAERS Safety Report 16870100 (Version 1)
Quarter: 2019Q3

REPORT INFORMATION
  Report Type: Report from Study
  Country: KR (occurrence: KR)
  Receive Date: 20190930
  Receipt Date: 20190930
  Transmission Date: 20191005
  Serious: Yes (Hospitalization)
  Sender: FDA-Public Use
  Company Number: KR-GILEAD-2019-0428940

PATIENT
  Age: 33 Year
  Sex: Male

DRUGS (21)
  1. ZITHROMAX [Concomitant]
     Active Substance: AZITHROMYCIN DIHYDRATE
  2. MULTIVITAMIN AND MINERAL SUPPLEMENT [Concomitant]
     Active Substance: MINERALS\VITAMINS
  3. LEGALON [Concomitant]
     Active Substance: DIETARY SUPPLEMENT\HERBALS\MILK THISTLE
  4. LEVOFLOXACIN. [Concomitant]
     Active Substance: LEVOFLOXACIN
  5. CETIRIN [CETIRIZINE HYDROCHLORIDE] [Concomitant]
  6. SEPTRIN [Concomitant]
     Active Substance: SULFAMETHOXAZOLE\TRIMETHOPRIM
     Dosage: 480 MG
     Route: 048
     Dates: start: 20190826
  7. COTRIM [Concomitant]
     Active Substance: SULFAMETHOXAZOLE\TRIMETHOPRIM
  8. ADELAVIN [Concomitant]
     Active Substance: FLAVIN ADENINE DINUCLEOTIDE
  9. METHYSOLONE [Concomitant]
     Dosage: UNK
     Dates: start: 20190827
  10. RANITIDINE. [Concomitant]
     Active Substance: RANITIDINE
  11. SMECTA [Concomitant]
     Active Substance: MONTMORILLONITE
  12. LANSTON LFDT [Concomitant]
     Active Substance: LANSOPRAZOLE
     Dosage: UNK
     Dates: start: 20190823
  13. MORNIFLU [Concomitant]
     Active Substance: MORNIFLUMATE
  14. CEFTRIAXONE. [Concomitant]
     Active Substance: CEFTRIAXONE
  15. ENDIS [Concomitant]
  16. DENOGAN [Concomitant]
     Active Substance: PROPACETAMOL HYDROCHLORIDE
  17. ANYCOUGH [THEOBROMINE] [Concomitant]
  18. ELVITEGRAVIR/COBICISTAT/EMTRICITABINE/TENOFOVIR ALAFENAMIDE [Suspect]
     Active Substance: COBICISTAT\ELVITEGRAVIR\EMTRICITABINE\TENOFOVIR
     Indication: HIV INFECTION
     Dosage: 1 DOSAGE FORM, QD
     Route: 048
     Dates: start: 20190902, end: 20190915
  19. NAXOZOL [Concomitant]
  20. METRINAL [Concomitant]
  21. TIROPA [Concomitant]
     Active Substance: TIROPRAMIDE

REACTIONS (6)
  - Pyrexia [Not Recovered/Not Resolved]
  - Cytomegalovirus infection [Not Recovered/Not Resolved]
  - Diarrhoea [Not Recovered/Not Resolved]
  - Tuberculosis [Not Recovered/Not Resolved]
  - Colitis [Not Recovered/Not Resolved]
  - Arthralgia [Recovered/Resolved]

NARRATIVE: CASE EVENT DATE: 20190911
